FAERS Safety Report 8608456 (Version 2)
Quarter: 2012Q4

REPORT INFORMATION
  Report Type: 
  Country: US (occurrence: US)
  Receive Date: 20120611
  Receipt Date: 20121218
  Transmission Date: 20130627
  Serious: Yes (Other)
  Sender: FDA-Public Use
  Company Number: US-ROCHE-1076550

PATIENT
  Sex: Male

DRUGS (7)
  1. LUCENTIS [Suspect]
     Indication: DIABETIC RETINAL OEDEMA
     Route: 050
     Dates: start: 20120823, end: 20121127
  2. LEVOMET [Concomitant]
  3. ATORVASTATIN [Concomitant]
  4. SIMVASTATIN [Concomitant]
  5. ENALAPRIL [Concomitant]
  6. FAMOTIDINE [Concomitant]
  7. ASA [Concomitant]

REACTIONS (3)
  - Myocardial infarction [Unknown]
  - Localised infection [Unknown]
  - Cardiac failure congestive [Unknown]
